FAERS Safety Report 10095556 (Version 2)
Quarter: 2014Q2

REPORT INFORMATION
  Report Type: Spontaneous
  Country: US (occurrence: US)
  Receive Date: 20140422
  Receipt Date: 20140430
  Transmission Date: 20141212
  Serious: No
  Sender: FDA-Public Use
  Company Number: US-009507513-1403USA011560

PATIENT
  Age: 39 Year
  Sex: Female

DRUGS (3)
  1. FOLLISTIM AQ CARTRIDGE [Suspect]
     Indication: PRODUCT USED FOR UNKNOWN INDICATION
     Dosage: 300 IU, QD FOR 6 TO 7 DAYS
     Route: 058
     Dates: start: 20140323, end: 20140323
  2. FOLLISTIM AQ CARTRIDGE [Suspect]
     Dosage: 250 IU, ONCE
     Route: 058
     Dates: start: 20140324, end: 20140324
  3. FOLLISTIM AQ CARTRIDGE [Suspect]
     Dosage: 300 IU, QD FOR 6 TO 7 DAYS
     Route: 058
     Dates: start: 201403

REACTIONS (2)
  - Underdose [Unknown]
  - Product quality issue [Unknown]
